FAERS Safety Report 17643911 (Version 1)
Quarter: 2020Q2

REPORT INFORMATION
  Report Type: Spontaneous
  Country: US (occurrence: US)
  Receive Date: 20200408
  Receipt Date: 20200408
  Transmission Date: 20200713
  Serious: No
  Sender: FDA-Public Use
  Company Number: None

PATIENT
  Age: 73 Year
  Sex: Female
  Weight: 60.75 kg

DRUGS (7)
  1. MULTIVITAMIN [Concomitant]
     Active Substance: VITAMINS
  2. FISH OIL [Concomitant]
     Active Substance: FISH OIL
  3. ROVASTATIN [Concomitant]
     Active Substance: ROSUVASTATIN
  4. TUMERIC [Concomitant]
     Active Substance: HERBALS\TURMERIC
  5. ATENOLOL. [Concomitant]
     Active Substance: ATENOLOL
  6. MACROBID [Suspect]
     Active Substance: NITROFURANTOIN\NITROFURANTOIN MONOHYDRATE
     Indication: URINARY TRACT INFECTION
     Dosage: ?          QUANTITY:1 CAPSULE(S);?
     Route: 048
     Dates: start: 20200109, end: 20200113
  7. LEVYTHYROZINE [Concomitant]

REACTIONS (4)
  - Chest pain [None]
  - Cough [None]
  - Lethargy [None]
  - Influenza like illness [None]

NARRATIVE: CASE EVENT DATE: 20200109
